FAERS Safety Report 20953947 (Version 2)
Quarter: 2022Q2

REPORT INFORMATION
  Report Type: Spontaneous
  Country: KR (occurrence: KR)
  Receive Date: 20220614
  Receipt Date: 20220616
  Transmission Date: 20220721
  Serious: Yes (Other)
  Sender: FDA-Public Use
  Company Number: KR-KYOWAKIRIN-2022AKK008750

PATIENT
  Age: 28 Month
  Sex: Female

DRUGS (38)
  1. FILGRASTIM [Suspect]
     Active Substance: FILGRASTIM
     Indication: Prophylaxis
     Dosage: 9 DF
     Route: 065
  2. FILGRASTIM [Suspect]
     Active Substance: FILGRASTIM
     Dosage: 6 DF
     Route: 065
  3. FILGRASTIM [Suspect]
     Active Substance: FILGRASTIM
     Dosage: 9 DF
     Route: 065
  4. FILGRASTIM [Suspect]
     Active Substance: FILGRASTIM
     Dosage: 4 DF
     Route: 065
  5. FILGRASTIM [Suspect]
     Active Substance: FILGRASTIM
     Dosage: 13 DF
     Route: 065
  6. FILGRASTIM [Suspect]
     Active Substance: FILGRASTIM
     Dosage: 1 DF
     Route: 065
  7. FILGRASTIM [Suspect]
     Active Substance: FILGRASTIM
     Dosage: 2 DF
     Route: 065
  8. FILGRASTIM [Suspect]
     Active Substance: FILGRASTIM
     Dosage: 6 DF
     Route: 065
  9. FILGRASTIM [Suspect]
     Active Substance: FILGRASTIM
     Dosage: 5 DF
     Route: 065
  10. FILGRASTIM [Suspect]
     Active Substance: FILGRASTIM
     Dosage: 8 DF
     Route: 065
  11. FILGRASTIM [Suspect]
     Active Substance: FILGRASTIM
     Dosage: 5 DF
     Route: 065
  12. FILGRASTIM [Suspect]
     Active Substance: FILGRASTIM
     Dosage: 2 DF
     Route: 065
  13. FILGRASTIM [Suspect]
     Active Substance: FILGRASTIM
     Dosage: 2 DF
     Route: 065
  14. FILGRASTIM [Suspect]
     Active Substance: FILGRASTIM
     Dosage: 1 DF
     Route: 065
  15. FILGRASTIM [Suspect]
     Active Substance: FILGRASTIM
     Dosage: 1 DF
     Route: 065
  16. FILGRASTIM [Suspect]
     Active Substance: FILGRASTIM
     Dosage: 6 UNK
     Route: 065
  17. ERYTHROPOIETIN [Concomitant]
     Active Substance: ERYTHROPOIETIN
     Indication: Anaemia
     Dosage: 7 DF
     Route: 042
  18. ERYTHROPOIETIN [Concomitant]
     Active Substance: ERYTHROPOIETIN
     Dosage: 8 DF
     Route: 042
  19. ERYTHROPOIETIN [Concomitant]
     Active Substance: ERYTHROPOIETIN
     Dosage: 7 DF
     Route: 042
  20. ERYTHROPOIETIN [Concomitant]
     Active Substance: ERYTHROPOIETIN
     Dosage: 8 DF
     Route: 042
  21. ERYTHROPOIETIN [Concomitant]
     Active Substance: ERYTHROPOIETIN
     Dosage: 9 DF
     Route: 042
  22. ERYTHROPOIETIN [Concomitant]
     Active Substance: ERYTHROPOIETIN
     Dosage: 4 DF
     Route: 042
  23. ERYTHROPOIETIN [Concomitant]
     Active Substance: ERYTHROPOIETIN
     Dosage: 4 DF
     Route: 042
  24. ERYTHROPOIETIN [Concomitant]
     Active Substance: ERYTHROPOIETIN
     Dosage: 6 DF
     Route: 042
  25. ERYTHROPOIETIN [Concomitant]
     Active Substance: ERYTHROPOIETIN
     Dosage: 8 DF
     Route: 042
  26. ERYTHROPOIETIN [Concomitant]
     Active Substance: ERYTHROPOIETIN
     Dosage: 10 DF
     Route: 042
  27. ERYTHROPOIETIN [Concomitant]
     Active Substance: ERYTHROPOIETIN
     Dosage: 6 DF
     Route: 042
  28. ERYTHROPOIETIN [Concomitant]
     Active Substance: ERYTHROPOIETIN
     Dosage: 5 DF
     Route: 042
  29. ERYTHROPOIETIN [Concomitant]
     Active Substance: ERYTHROPOIETIN
     Dosage: 3 DF
     Route: 042
  30. ERYTHROPOIETIN [Concomitant]
     Active Substance: ERYTHROPOIETIN
     Dosage: 1 DF
     Route: 042
  31. ERYTHROPOIETIN [Concomitant]
     Active Substance: ERYTHROPOIETIN
     Dosage: 2 DF
     Route: 042
  32. ERYTHROPOIETIN [Concomitant]
     Active Substance: ERYTHROPOIETIN
     Dosage: 1 DF
     Route: 042
  33. ERYTHROPOIETIN [Concomitant]
     Active Substance: ERYTHROPOIETIN
     Dosage: 6 DF
     Route: 042
  34. VINCRISTINE [Concomitant]
     Active Substance: VINCRISTINE
     Indication: Ewing^s sarcoma
     Dosage: VDC/IE CHEMOTHERAPY
     Route: 065
  35. DOXORUBICIN [Concomitant]
     Active Substance: DOXORUBICIN
     Indication: Ewing^s sarcoma
     Dosage: VDC/IE CHEMOTHERAPY
     Route: 065
  36. CYCLOPHOSPHAMIDE [Concomitant]
     Active Substance: CYCLOPHOSPHAMIDE
     Indication: Ewing^s sarcoma
     Dosage: VDC/IE CHEMOTHERAPY
     Route: 065
  37. IFOSFAMIDE [Concomitant]
     Active Substance: IFOSFAMIDE
     Indication: Ewing^s sarcoma
     Dosage: VDC/IE CHEMOTHERAPY
     Route: 065
  38. ETOPOSIDE [Concomitant]
     Active Substance: ETOPOSIDE
     Indication: Ewing^s sarcoma
     Dosage: VDC/IE CHEMOTHERAPY
     Route: 065

REACTIONS (5)
  - Febrile neutropenia [Unknown]
  - Neutrophil count decreased [Unknown]
  - Reticulocyte count decreased [Unknown]
  - Haemoglobin decreased [Unknown]
  - Platelet count decreased [Unknown]
